FAERS Safety Report 19887008 (Version 1)
Quarter: 2021Q3

REPORT INFORMATION
  Report Type: Spontaneous
  Country: US (occurrence: US)
  Receive Date: 20210928
  Receipt Date: 20210928
  Transmission Date: 20211014
  Serious: No
  Sender: FDA-Public Use
  Company Number: US-AUROBINDO-AUR-APL-2021-035295

PATIENT
  Sex: Female
  Weight: 88.44 kg

DRUGS (5)
  1. ESTRADIOL. [Concomitant]
     Active Substance: ESTRADIOL
     Indication: PRODUCT USED FOR UNKNOWN INDICATION
     Dosage: 1 MILLIGRAM, 3 TIMES A DAY
     Route: 065
  2. PROGESTERONE INJECTION USP 500MG/10ML MULTIPLE?DOSE VIAL [Suspect]
     Active Substance: PROGESTERONE
     Indication: SUPPLEMENTATION THERAPY
     Dosage: 1.5 MILLILITER, DAILY
     Route: 030
     Dates: start: 20210728
  3. PROGESTERONE INJECTION USP 500MG/10ML MULTIPLE?DOSE VIAL [Suspect]
     Active Substance: PROGESTERONE
     Dosage: UNK, THIRD VIAL
     Route: 065
  4. PRENATAL VITAMINS [Concomitant]
     Active Substance: VITAMINS
     Indication: PRODUCT USED FOR UNKNOWN INDICATION
     Dosage: UNK
     Route: 065
  5. PROGESTERONE INJECTION USP 500MG/10ML MULTIPLE?DOSE VIAL [Suspect]
     Active Substance: PROGESTERONE
     Dosage: 1.5 MILLILITER, DAILY
     Route: 030
     Dates: start: 20210728

REACTIONS (8)
  - Product contamination [Unknown]
  - Pain [Unknown]
  - Musculoskeletal pain [Unknown]
  - Injection site pain [Unknown]
  - Device difficult to use [Unknown]
  - Mass [Unknown]
  - Headache [Unknown]
  - Exposure during pregnancy [Unknown]
